FAERS Safety Report 9649622 (Version 2)
Quarter: 2013Q4

REPORT INFORMATION
  Report Type: Spontaneous
  Country: US (occurrence: US)
  Receive Date: 20131028
  Receipt Date: 20131211
  Transmission Date: 20140711
  Serious: No
  Sender: FDA-Public Use
  Company Number: US-009507513-1310USA012718

PATIENT
  Age: 74 Year
  Sex: Female
  Weight: 81.63 kg

DRUGS (5)
  1. OXYTROL FOR WOMEN [Suspect]
     Indication: HYPERTONIC BLADDER
     Dosage: 1 DF, Q4D
     Route: 062
     Dates: start: 201310
  2. ULTRAM [Concomitant]
     Indication: OSTEOARTHRITIS
     Dosage: 50 MG, BID
  3. ACTONEL [Concomitant]
     Indication: OSTEOPOROSIS
     Dosage: UNK, UNKNOWN
  4. ELAVIL (ALLOPURINOL) [Concomitant]
     Indication: PRODUCT USED FOR UNKNOWN INDICATION
     Dosage: 25 MG, PRN
  5. CALCIUM (UNSPECIFIED) (+) VITAMIN D (UNSPECIFIED) [Concomitant]
     Indication: PRODUCT USED FOR UNKNOWN INDICATION
     Dosage: UNK, UNKNOWN

REACTIONS (3)
  - Drug administered at inappropriate site [Unknown]
  - Drug effect decreased [Unknown]
  - Product adhesion issue [Unknown]
